FAERS Safety Report 11911692 (Version 1)
Quarter: 2016Q1

REPORT INFORMATION
  Report Type: Spontaneous
  Country: US (occurrence: US)
  Receive Date: 20160112
  Receipt Date: 20160112
  Transmission Date: 20160526
  Serious: No
  Sender: FDA-Public Use
  Company Number: US-WATSON-2015-23802

PATIENT

DRUGS (1)
  1. PACLITAXEL (ATLLC) [Suspect]
     Active Substance: PACLITAXEL
     Indication: PRODUCT USED FOR UNKNOWN INDICATION
     Dosage: 6 MG-50 ML
     Route: 065

REACTIONS (5)
  - Blood pressure decreased [Unknown]
  - Blood pressure increased [Unknown]
  - Dizziness [Unknown]
  - Dyspnoea [None]
  - Back pain [Unknown]
